FAERS Safety Report 8129179-5 (Version None)
Quarter: 2012Q1

REPORT INFORMATION
  Report Type: 
  Country: None (occurrence: None)
  Receive Date: 20120210
  Receipt Date: 20111108
  Transmission Date: 20120608
  Serious: No
  Sender: FDA-Public Use
  Company Number: US-BRISTOL-MYERS SQUIBB COMPANY-16221731

PATIENT
  Sex: Female

DRUGS (1)
  1. ORENCIA [Suspect]
     Dosage: LAST INF:SEP2011(TWO MONTHS AGO)
     Route: 042
     Dates: end: 20110901

REACTIONS (2)
  - INFECTION [None]
  - SINUSITIS [None]
